FAERS Safety Report 8359892-6 (Version None)
Quarter: 2012Q2

REPORT INFORMATION
  Report Type: 
  Country: None (occurrence: None)
  Receive Date: 20120515
  Receipt Date: 20120509
  Transmission Date: 20120825
  Serious: Yes (Other)
  Sender: FDA-Public Use
  Company Number: US-PFIZER INC-2012113568

PATIENT
  Sex: Male

DRUGS (1)
  1. PROTONIX [Suspect]
     Dosage: 40 MG, QAM
     Route: 048

REACTIONS (7)
  - IMPAIRED WORK ABILITY [None]
  - DEPRESSION [None]
  - BACK INJURY [None]
  - PAIN [None]
  - AFFECT LABILITY [None]
  - STRESS [None]
  - ANXIETY [None]
